FAERS Safety Report 9241185 (Version 1)
Quarter: 2013Q2

REPORT INFORMATION
  Report Type: Spontaneous
  Country: BR (occurrence: BR)
  Receive Date: 20130419
  Receipt Date: 20130419
  Transmission Date: 20140414
  Serious: Yes (Other)
  Sender: FDA-Public Use
  Company Number: BR-AMGEN-BRASP2013026902

PATIENT
  Sex: Male
  Weight: 66 kg

DRUGS (2)
  1. ENBREL [Suspect]
     Indication: RHEUMATOID ARTHRITIS
     Dosage: 50 MG, WEEKLY
     Route: 058
     Dates: start: 2008, end: 2012
  2. ENBREL [Suspect]
     Dosage: UNK
     Dates: start: 2012, end: 2012

REACTIONS (1)
  - Cerebrovascular accident [Unknown]
